FAERS Safety Report 16369577 (Version 1)
Quarter: 2019Q2

REPORT INFORMATION
  Report Type: Spontaneous
  Country: US (occurrence: US)
  Receive Date: 20190530
  Receipt Date: 20190530
  Transmission Date: 20190711
  Serious: No
  Sender: FDA-Public Use
  Company Number: US-SHIRE-US201917563

PATIENT
  Age: 47 Year
  Sex: Female

DRUGS (1)
  1. PENTASA [Suspect]
     Active Substance: MESALAMINE
     Indication: COLITIS ULCERATIVE
     Dosage: 1 GRAM, 4X/DAY:QID
     Route: 048
     Dates: start: 201811

REACTIONS (4)
  - Blister [Not Recovered/Not Resolved]
  - Secretion discharge [Not Recovered/Not Resolved]
  - Rhinorrhoea [Not Recovered/Not Resolved]
  - Oral mucosal blistering [Not Recovered/Not Resolved]

NARRATIVE: CASE EVENT DATE: 201812
